FAERS Safety Report 5410364-8 (Version None)
Quarter: 2007Q3

REPORT INFORMATION
  Report Type: 
  Country: None (occurrence: None)
  Receive Date: 20070808
  Receipt Date: 20070730
  Transmission Date: 20080115
  Serious: Yes (Other)
  Sender: FDA-Public Use
  Company Number: 028-21880-07071339

PATIENT
  Age: 77 Year
  Sex: Male
  Weight: 68.8 kg

DRUGS (11)
  1. REVLIMID [Suspect]
     Indication: MULTIPLE MYELOMA
     Dosage: 10 MG, OD DAYS 1-21, ORAL
     Route: 048
     Dates: start: 20070619, end: 20070709
  2. MELPHALAN (MELPHALAN) [Suspect]
     Indication: MULTIPLE MYELOMA
     Dosage: 8 MG, OD DAYS 1-4, ORAL
     Route: 048
     Dates: start: 20070517, end: 20070521
  3. MELPHALAN (MELPHALAN) [Suspect]
     Indication: MULTIPLE MYELOMA
     Dosage: 8 MG, OD DAYS 1-4, ORAL
     Route: 048
     Dates: start: 20070609, end: 20070622
  4. ASPIRIN [Concomitant]
  5. LEVOTHYROXINE SODIUM [Concomitant]
  6. TRIAZIDE (TRICHLORMETHIAZIDE) [Concomitant]
  7. ADALAT CC [Concomitant]
  8. CRESTOR [Concomitant]
  9. HYCODAN [Concomitant]
  10. SENOKOT [Concomitant]
  11. COLACE (DOCUSATE SODIUM) [Concomitant]

REACTIONS (7)
  - CRANIAL NEUROPATHY [None]
  - DIPLOPIA [None]
  - DRUG INEFFECTIVE [None]
  - EXOPHTHALMOS [None]
  - HEADACHE [None]
  - IIIRD NERVE DISORDER [None]
  - VITH NERVE DISORDER [None]
